FAERS Safety Report 9303707 (Version 1)
Quarter: 2013Q2

REPORT INFORMATION
  Report Type: Spontaneous
  Country: US (occurrence: US)
  Receive Date: 20130522
  Receipt Date: 20130522
  Transmission Date: 20140414
  Serious: Yes (Hospitalization)
  Sender: FDA-Public Use
  Company Number: US-GLAXOSMITHKLINE-A0783351A

PATIENT
  Age: 44 Year
  Sex: Male

DRUGS (1)
  1. AVANDIA [Suspect]
     Indication: DIABETES MELLITUS
     Route: 048

REACTIONS (8)
  - Cardiac failure congestive [Unknown]
  - Renal failure acute [Unknown]
  - Sarcoidosis [Unknown]
  - Fatigue [Unknown]
  - Acute respiratory failure [Unknown]
  - Sleep apnoea syndrome [Unknown]
  - Ischaemic cardiomyopathy [Unknown]
  - Myocardial infarction [Unknown]
